FAERS Safety Report 18731469 (Version 1)
Quarter: 2021Q1

REPORT INFORMATION
  Report Type: Spontaneous
  Country: GR (occurrence: GR)
  Receive Date: 20210112
  Receipt Date: 20210112
  Transmission Date: 20210419
  Serious: Yes (Death, Other)
  Sender: FDA-Public Use
  Company Number: GR-FRESENIUS KABI-FK202100391

PATIENT
  Age: 85 Year
  Sex: Male

DRUGS (4)
  1. ISONIAZID. [Suspect]
     Active Substance: ISONIAZID
     Indication: DRUG THERAPY
     Dosage: UNKNOWN
     Route: 065
  2. RIFAMPIN (MANUFACTURER UNKNOWN) [Suspect]
     Active Substance: RIFAMPIN
     Indication: DRUG THERAPY
     Dosage: UNKNOWN
     Route: 065
  3. PYRAZINAMIDE. [Suspect]
     Active Substance: PYRAZINAMIDE
     Indication: DRUG THERAPY
     Dosage: UNKNOWN
     Route: 065
  4. ETHAMBUTOL [Suspect]
     Active Substance: ETHAMBUTOL HYDROCHLORIDE
     Indication: DRUG THERAPY
     Dosage: UNKNOWN
     Route: 065

REACTIONS (5)
  - Haemodynamic instability [Fatal]
  - Respiratory alkalosis [Fatal]
  - Septic embolus [Fatal]
  - Respiratory failure [Fatal]
  - Hepatitis [Recovering/Resolving]
